FAERS Safety Report 21960147 (Version 1)
Quarter: 2023Q1

REPORT INFORMATION
  Report Type: Spontaneous
  Country: CN (occurrence: None)
  Receive Date: 20230207
  Receipt Date: 20230207
  Transmission Date: 20230417
  Serious: Yes (Hospitalization)
  Sender: FDA-Public Use
  Company Number: CN-ROCHE-3279001

PATIENT
  Age: 58 Year
  Sex: Female
  Weight: 69.9 kg

DRUGS (6)
  1. CARBOPLATIN [Suspect]
     Active Substance: CARBOPLATIN
     Indication: Neoplasm malignant
     Route: 041
     Dates: start: 20230109
  2. HERCEPTIN [Suspect]
     Active Substance: TRASTUZUMAB
     Indication: Neoplasm malignant
     Route: 041
     Dates: start: 20230109
  3. PACLITAXEL [Suspect]
     Active Substance: PACLITAXEL
     Indication: Neoplasm malignant
     Route: 041
     Dates: start: 20230109
  4. SODIUM CHLORIDE [Concomitant]
     Active Substance: SODIUM CHLORIDE
     Indication: Neoplasm malignant
     Route: 041
     Dates: start: 20230109
  5. SODIUM CHLORIDE [Concomitant]
     Active Substance: SODIUM CHLORIDE
     Route: 041
     Dates: start: 20230109
  6. DEXTROSE [Concomitant]
     Active Substance: DEXTROSE
     Indication: Neoplasm malignant
     Route: 041
     Dates: start: 20230109

REACTIONS (1)
  - Myelosuppression [Recovering/Resolving]

NARRATIVE: CASE EVENT DATE: 20230116
